FAERS Safety Report 8817266 (Version 3)
Quarter: 2012Q4

REPORT INFORMATION
  Report Type: 
  Country: US (occurrence: US)
  Receive Date: 20121004
  Receipt Date: 20121024
  Transmission Date: 20130627
  Serious: No
  Sender: FDA-Public Use
  Company Number: US-VERTEX PHARMACEUTICAL INC.-2012-021695

PATIENT
  Age: 48 None
  Sex: Male
  Weight: 82 kg

DRUGS (9)
  1. INCIVEK [Suspect]
     Indication: HEPATITIS C
     Dosage: 750 mg, tid
     Route: 048
     Dates: start: 20120825
  2. COPEGUS [Suspect]
     Indication: HEPATITIS C
     Dosage: 600mg am, 400mg pm
     Route: 048
     Dates: start: 20120825, end: 20120926
  3. COPEGUS [Suspect]
     Dosage: 400 mg, bid
     Dates: start: 20120926
  4. PEGASYS [Suspect]
     Indication: HEPATITIS C
     Dosage: 180 ?g,weekly
     Route: 058
     Dates: start: 20120825
  5. NORVASC [Concomitant]
     Dosage: 10 mg, qd
     Route: 048
  6. ALDACTONE                          /00006201/ [Concomitant]
  7. LISINOPRIL [Concomitant]
  8. HALDOL                             /00027401/ [Concomitant]
     Dosage: 5 mg, prn
  9. COGENTIN [Concomitant]
     Dosage: 2 mg, prn

REACTIONS (18)
  - Drug dose omission [Recovered/Resolved]
  - White blood cell count decreased [Not Recovered/Not Resolved]
  - Renal disorder [Not Recovered/Not Resolved]
  - Dyspnoea [Not Recovered/Not Resolved]
  - Dizziness postural [Not Recovered/Not Resolved]
  - Headache [Not Recovered/Not Resolved]
  - Malaise [Not Recovered/Not Resolved]
  - Eye pain [Not Recovered/Not Resolved]
  - Abdominal discomfort [Not Recovered/Not Resolved]
  - Decreased appetite [Not Recovered/Not Resolved]
  - Asthenia [Not Recovered/Not Resolved]
  - Fatigue [Not Recovered/Not Resolved]
  - Red blood cell count decreased [Not Recovered/Not Resolved]
  - Pruritus generalised [Not Recovered/Not Resolved]
  - Diarrhoea [Unknown]
  - Nausea [Not Recovered/Not Resolved]
  - Dysgeusia [Not Recovered/Not Resolved]
  - Anal pruritus [Not Recovered/Not Resolved]
